FAERS Safety Report 6431158-0 (Version None)
Quarter: 2009Q4

REPORT INFORMATION
  Report Type: 
  Country: None (occurrence: None)
  Receive Date: 20091106
  Receipt Date: 20091027
  Transmission Date: 20100525
  Serious: Yes (Hospitalization)
  Sender: FDA-Public Use
  Company Number: US-JNJFOC-20091003688

PATIENT
  Sex: Male
  Weight: 61.7 kg

DRUGS (3)
  1. INFLIXIMAB [Suspect]
     Indication: INFLAMMATORY BOWEL DISEASE
     Route: 042
  2. GROWTH HORMONE [Concomitant]
  3. ANTIBIOTICS, NOS [Concomitant]
     Indication: INFLAMMATORY BOWEL DISEASE

REACTIONS (1)
  - SUBCUTANEOUS ABSCESS [None]
